FAERS Safety Report 9355246 (Version 1)
Quarter: 2013Q2

REPORT INFORMATION
  Report Type: Spontaneous
  Country: US (occurrence: None)
  Receive Date: 20130618
  Receipt Date: 20130618
  Transmission Date: 20140414
  Serious: No
  Sender: FDA-Public Use
  Company Number: None

PATIENT
  Age: 54 Year
  Sex: Female
  Weight: 66.68 kg

DRUGS (1)
  1. ESCITALOPRAM [Suspect]
     Indication: ANXIETY
     Dates: start: 20130101, end: 20130501

REACTIONS (3)
  - Scar [None]
  - Folliculitis [None]
  - Skin disorder [None]
